FAERS Safety Report 25944740 (Version 1)
Quarter: 2025Q4

REPORT INFORMATION
  Report Type: Spontaneous
  Country: US (occurrence: US)
  Receive Date: 20251021
  Receipt Date: 20251021
  Transmission Date: 20260118
  Serious: No
  Sender: Phathom Pharmaceuticals
  Company Number: US-PHATHOM PHARMACEUTICALS INC.-2025PHT01770

PATIENT
  Age: 54 Year
  Sex: Female

DRUGS (4)
  1. VOQUEZNA [Suspect]
     Active Substance: VONOPRAZAN FUMARATE
     Dosage: 20 MG, 1X/DAY
     Route: 048
     Dates: start: 20250607, end: 20250630
  2. NP THYROID [Concomitant]
     Active Substance: LEVOTHYROXINE\LIOTHYRONINE
  3. RINVOQ [Concomitant]
     Active Substance: UPADACITINIB
  4. BHRT BASE [Concomitant]

REACTIONS (3)
  - Pruritus [Unknown]
  - Anxiety [Unknown]
  - Dyspepsia [Unknown]

NARRATIVE: CASE EVENT DATE: 20250601
